FAERS Safety Report 14882079 (Version 2)
Quarter: 2018Q2

REPORT INFORMATION
  Report Type: Spontaneous
  Country: US (occurrence: US)
  Receive Date: 20180511
  Receipt Date: 20180523
  Transmission Date: 20180711
  Serious: No
  Sender: FDA-Public Use
  Company Number: US-009507513-1805USA004754

PATIENT
  Age: 28 Year
  Sex: Female
  Weight: 44.26 kg

DRUGS (1)
  1. NEXPLANON [Suspect]
     Active Substance: ETONOGESTREL
     Indication: CONTRACEPTION
     Dosage: 1 ROD EVERY THREE YEARS
     Route: 059

REACTIONS (4)
  - Complication of device removal [Not Recovered/Not Resolved]
  - Complication associated with device [Not Recovered/Not Resolved]
  - Incorrect drug administration duration [Unknown]
  - No adverse event [Unknown]

NARRATIVE: CASE EVENT DATE: 2016
